FAERS Safety Report 8578523-3 (Version None)
Quarter: 2012Q3

REPORT INFORMATION
  Report Type: 
  Country: None (occurrence: None)
  Receive Date: 20120808
  Receipt Date: 20120807
  Transmission Date: 20120928
  Serious: Yes (Death)
  Sender: FDA-Public Use
  Company Number: DE-ABBOTT-12P-062-0920341-00

PATIENT
  Sex: Female

DRUGS (2)
  1. HUMIRA [Suspect]
     Indication: RHEUMATOID ARTHRITIS
     Route: 058
     Dates: start: 20060701, end: 20091101
  2. HUMIRA [Suspect]
     Route: 058
     Dates: start: 20100301

REACTIONS (3)
  - CARDIOGENIC SHOCK [None]
  - HYPOXIC-ISCHAEMIC ENCEPHALOPATHY [None]
  - ACUTE MYOCARDIAL INFARCTION [None]
